FAERS Safety Report 8416403-4 (Version None)
Quarter: 2012Q2

REPORT INFORMATION
  Report Type: 
  Country: None (occurrence: None)
  Receive Date: 20120606
  Receipt Date: 20120525
  Transmission Date: 20120825
  Serious: Yes (Hospitalization)
  Sender: FDA-Public Use
  Company Number: US-ELI_LILLY_AND_COMPANY-US201205010186

PATIENT
  Sex: Female

DRUGS (1)
  1. FORTEO [Suspect]
     Indication: OSTEOPOROSIS
     Dosage: 20 U, QD
     Dates: start: 20120423

REACTIONS (6)
  - MUSCLE SPASMS [None]
  - PAIN [None]
  - DYSPNOEA [None]
  - URINE ABNORMALITY [None]
  - MUSCULAR WEAKNESS [None]
  - HYPOKINESIA [None]
